FAERS Safety Report 11340762 (Version 7)
Quarter: 2015Q4

REPORT INFORMATION
  Report Type: Spontaneous
  Country: US (occurrence: US)
  Receive Date: 20150805
  Receipt Date: 20151230
  Transmission Date: 20160304
  Serious: Yes (Other)
  Sender: FDA-Public Use
  Company Number: US-PFIZER INC-2015259064

PATIENT
  Age: 69 Year
  Sex: Female
  Weight: 93 kg

DRUGS (4)
  1. IBRANCE [Suspect]
     Active Substance: PALBOCICLIB
     Dosage: 125 MG, CYCLIC (1D-21D Q 28 D)
     Route: 048
     Dates: start: 20150717
  2. IBRANCE [Suspect]
     Active Substance: PALBOCICLIB
     Indication: BREAST CANCER FEMALE
     Dosage: 125 MG, CYCLIC (D1-D21Q28)
     Route: 048
     Dates: start: 20150717
  3. IBRANCE [Suspect]
     Active Substance: PALBOCICLIB
     Dosage: 100 MG, CYCLIC (1D-21D Q 28 DAYS)
     Route: 048
     Dates: start: 20150717
  4. LETROZOLE. [Suspect]
     Active Substance: LETROZOLE
     Dosage: UNK

REACTIONS (9)
  - Neutropenia [Not Recovered/Not Resolved]
  - Vomiting [Unknown]
  - Weight decreased [Unknown]
  - Disease progression [Unknown]
  - Breast cancer [Unknown]
  - Nausea [Unknown]
  - Full blood count decreased [Unknown]
  - Vulvovaginal pruritus [Unknown]
  - White blood cell count decreased [Unknown]

NARRATIVE: CASE EVENT DATE: 20150731
